FAERS Safety Report 26083781 (Version 1)
Quarter: 2025Q4

REPORT INFORMATION
  Report Type: Spontaneous
  Country: US (occurrence: US)
  Receive Date: 20251124
  Receipt Date: 20251124
  Transmission Date: 20260118
  Serious: Yes (Other)
  Sender: PFIZER
  Company Number: US-PFIZER INC-PV202500136098

PATIENT
  Age: 47 Year
  Sex: Female

DRUGS (1)
  1. SOLU-MEDROL [Suspect]
     Active Substance: METHYLPREDNISOLONE SODIUM SUCCINATE
     Indication: Optic neuritis
     Dosage: UNK

REACTIONS (4)
  - Angioedema [Unknown]
  - Periorbital swelling [Unknown]
  - Erythema of eyelid [Unknown]
  - Off label use [Unknown]
